FAERS Safety Report 16455201 (Version 1)
Quarter: 2019Q2

REPORT INFORMATION
  Report Type: Other
  Country: US (occurrence: US)
  Receive Date: 20190620
  Receipt Date: 20190620
  Transmission Date: 20190711
  Serious: No
  Sender: FDA-Public Use
  Company Number: US-GLENMARK PHARMACEUTICALS-2019GMK041271

PATIENT

DRUGS (1)
  1. ESTRADIOL VAGINAL INSERTS USP [Suspect]
     Active Substance: ESTRADIOL
     Indication: PRODUCT USED FOR UNKNOWN INDICATION
     Dosage: UNK
     Route: 065

REACTIONS (3)
  - Vulvovaginal pain [Unknown]
  - Medical device pain [Unknown]
  - Device issue [Unknown]
